FAERS Safety Report 4470955-8 (Version None)
Quarter: 2004Q4

REPORT INFORMATION
  Report Type: 
  Country: None (occurrence: None)
  Receive Date: 20041011
  Receipt Date: 20041006
  Transmission Date: 20050328
  Serious: Yes (Disabling)
  Sender: FDA-Public Use
  Company Number: US-MERCK-0410USA00693

PATIENT
  Sex: Male

DRUGS (1)
  1. VIOXX [Suspect]
     Indication: PAIN
     Route: 048
     Dates: start: 19990101

REACTIONS (6)
  - ABSCESS [None]
  - BONE DISORDER [None]
  - BONE INFECTION [None]
  - DISABILITY [None]
  - PAIN [None]
  - TOOTH LOSS [None]
